FAERS Safety Report 7656996-8 (Version None)
Quarter: 2011Q3

REPORT INFORMATION
  Report Type: 
  Country: None (occurrence: None)
  Receive Date: 20110804
  Receipt Date: 20110727
  Transmission Date: 20111222
  Serious: Yes (Hospitalization, Disabling, Other)
  Sender: FDA-Public Use
  Company Number: IE-JNJFOC-20110712306

PATIENT
  Sex: Female

DRUGS (1)
  1. LEVOFLOXACIN [Suspect]
     Indication: RESPIRATORY TRACT INFECTION
     Route: 065

REACTIONS (5)
  - PULMONARY EMBOLISM [None]
  - DYSPNOEA [None]
  - OXYGEN SATURATION DECREASED [None]
  - TENDON RUPTURE [None]
  - HAEMOPTYSIS [None]
